FAERS Safety Report 8295183-X (Version None)
Quarter: 2012Q2

REPORT INFORMATION
  Report Type: 
  Country: None (occurrence: None)
  Receive Date: 20120418
  Receipt Date: 20120403
  Transmission Date: 20120825
  Serious: Yes (Hospitalization)
  Sender: FDA-Public Use
  Company Number: US-ROCHE-1039594

PATIENT
  Age: 75 Year
  Sex: Female
  Weight: 76.16 kg

DRUGS (2)
  1. VISMODEGIB [Suspect]
     Indication: PANCREATIC CARCINOMA
     Route: 048
     Dates: start: 20111003
  2. GEMCITABINE HYDROCHLORIDE [Suspect]
     Indication: PANCREATIC CARCINOMA
     Dosage: OVER 30 MINUTES ON DAY 1,8,15 WITH CYCLE 2 (DAY29)
     Route: 042
     Dates: start: 20111003

REACTIONS (1)
  - EMBOLISM [None]
